FAERS Safety Report 8469789-9 (Version None)
Quarter: 2012Q2

REPORT INFORMATION
  Report Type: 
  Country: None (occurrence: None)
  Receive Date: 20120626
  Receipt Date: 20120613
  Transmission Date: 20120825
  Serious: Yes (Other)
  Sender: FDA-Public Use
  Company Number: FR-ELI_LILLY_AND_COMPANY-FR201206006000

PATIENT
  Age: 25 Year
  Sex: Male

DRUGS (2)
  1. ZYPREXA [Suspect]
     Dosage: 5 MG, QD
     Dates: start: 20120101
  2. ZYPREXA [Suspect]
     Dosage: 10 MG, UNKNOWN
     Dates: start: 20070901, end: 20080501

REACTIONS (4)
  - AMNESIA [None]
  - SOMNOLENCE [None]
  - SLEEP DISORDER [None]
  - DRUG EFFECT DECREASED [None]
